FAERS Safety Report 5108413-X (Version None)
Quarter: 2006Q3

REPORT INFORMATION
  Report Type: 
  Country: None (occurrence: None)
  Receive Date: 20060915
  Receipt Date: 20060907
  Transmission Date: 20061208
  Serious: Yes (Other)
  Sender: FDA-Public Use
  Company Number: 2006BH013282

PATIENT
  Age: 30 Year
  Sex: Male
  Weight: 61 kg

DRUGS (1)
  1. DIANEAL [Suspect]
     Indication: RENAL APLASIA
     Dosage: IP
     Route: 033

REACTIONS (2)
  - ACINETOBACTER INFECTION [None]
  - PERITONITIS BACTERIAL [None]
